FAERS Safety Report 15106367 (Version 1)
Quarter: 2018Q3

REPORT INFORMATION
  Report Type: Report from Study
  Country: IT (occurrence: IT)
  Receive Date: 20180704
  Receipt Date: 20180704
  Transmission Date: 20181010
  Serious: Yes (Other)
  Sender: FDA-Public Use
  Company Number: IT-TEVA-2018-IT-918604

PATIENT
  Age: 63 Year
  Sex: Male
  Weight: 76 kg

DRUGS (3)
  1. FLUOROURACILE AHCL 50 MG/ML, SOLUZIONE PER INIEZIONE O INFUSIONE [Suspect]
     Active Substance: FLUOROURACIL SODIUM
     Indication: OESOPHAGEAL ADENOCARCINOMA
     Route: 042
     Dates: start: 20180328
  2. CALCIO LEVOFOLINATO TEVA 100 MG POLVERE PER SOLUZIONE PER INFUSIONE [Concomitant]
     Indication: OESOPHAGEAL ADENOCARCINOMA
     Route: 042
     Dates: start: 20180328
  3. OXALIPLATINO TEVA 5 MG / ML, CONCENTRATO PER SOLUZIONE PER INFUSIONE . [Suspect]
     Active Substance: OXALIPLATIN
     Indication: OESOPHAGEAL ADENOCARCINOMA
     Route: 042
     Dates: start: 20180328

REACTIONS (4)
  - Neutropenia [Not Recovered/Not Resolved]
  - Anaemia [Not Recovered/Not Resolved]
  - Erythropenia [Not Recovered/Not Resolved]
  - Leukopenia [Not Recovered/Not Resolved]

NARRATIVE: CASE EVENT DATE: 20180416
